FAERS Safety Report 22038455 (Version 1)
Quarter: 2023Q1

REPORT INFORMATION
  Report Type: Spontaneous
  Country: US (occurrence: US)
  Receive Date: 20230227
  Receipt Date: 20230227
  Transmission Date: 20230417
  Serious: No
  Sender: FDA-Public Use
  Company Number: US-EXELIXIS-CABO-23061062

PATIENT
  Age: 50 Year
  Sex: Male

DRUGS (2)
  1. OPDIVO [Suspect]
     Active Substance: NIVOLUMAB
     Indication: Sarcoma
     Dosage: UNK, Q4WEEKS
  2. CABOMETYX [Suspect]
     Active Substance: CABOZANTINIB S-MALATE
     Indication: Sarcoma
     Dosage: 40 MG, QD

REACTIONS (3)
  - Flatulence [Unknown]
  - Abdominal distension [Unknown]
  - Off label use [Unknown]
